FAERS Safety Report 12881496 (Version 2)
Quarter: 2016Q4

REPORT INFORMATION
  Report Type: Report from Study
  Country: MX (occurrence: MX)
  Receive Date: 20161025
  Receipt Date: 20161208
  Transmission Date: 20170207
  Serious: Yes (Other)
  Sender: FDA-Public Use
  Company Number: PHHY2016MX145994

PATIENT
  Age: 9 Year
  Sex: Male
  Weight: 30 kg

DRUGS (3)
  1. ATEMPERATOR [Concomitant]
     Indication: DEVELOPMENTAL DELAY
     Dosage: 1 DF, QD
     Route: 048
     Dates: start: 20161015
  2. RITALINE [Suspect]
     Active Substance: METHYLPHENIDATE HYDROCHLORIDE
     Indication: ATTENTION DEFICIT/HYPERACTIVITY DISORDER
     Dosage: 0.5 DF (10 MG), IN THE MORNING
     Route: 048
     Dates: start: 20161017
  3. RITALINE [Suspect]
     Active Substance: METHYLPHENIDATE HYDROCHLORIDE
     Dosage: 0.75 DF (3/4) (10 MG), (HALF IN THE MORNING AND 1/4 IN THE AFTERNOON)
     Route: 065

REACTIONS (5)
  - Distractibility [Recovered/Resolved]
  - Developmental delay [Unknown]
  - Drug ineffective [Recovered/Resolved]
  - Wrong technique in product usage process [Unknown]
  - Restlessness [Recovered/Resolved]

NARRATIVE: CASE EVENT DATE: 20161017
